FAERS Safety Report 9171346 (Version 1)
Quarter: 2013Q1

REPORT INFORMATION
  Report Type: Spontaneous
  Country: US (occurrence: US)
  Receive Date: 20130319
  Receipt Date: 20130319
  Transmission Date: 20140127
  Serious: No
  Sender: FDA-Public Use
  Company Number: US-TEVA-389161USA

PATIENT
  Age: 67 Year
  Sex: Female

DRUGS (1)
  1. QVAR [Suspect]
     Route: 055
     Dates: start: 20130220, end: 201302

REACTIONS (1)
  - Cough [Recovered/Resolved]
